FAERS Safety Report 6899373-X (Version None)
Quarter: 2010Q3

REPORT INFORMATION
  Report Type: 
  Country: None (occurrence: None)
  Receive Date: 20100803
  Receipt Date: 20090430
  Transmission Date: 20110219
  Serious: No
  Sender: FDA-Public Use
  Company Number: US-PFIZER INC-2009179321

PATIENT
  Sex: Male
  Weight: 72.6 kg

DRUGS (1)
  1. CAVERJECT [Suspect]
     Indication: ERECTILE DYSFUNCTION

REACTIONS (4)
  - DISCOMFORT [None]
  - DRUG INEFFECTIVE [None]
  - ERYTHEMA [None]
  - PAIN [None]
